FAERS Safety Report 11135313 (Version 2)
Quarter: 2015Q2

REPORT INFORMATION
  Report Type: Report from Study
  Country: TR (occurrence: TR)
  Receive Date: 20150525
  Receipt Date: 20150602
  Transmission Date: 20150821
  Serious: Yes (Other)
  Sender: FDA-Public Use
  Company Number: PHHY2014TR024445

PATIENT
  Age: 15 Year
  Sex: Female
  Weight: 61 kg

DRUGS (2)
  1. EXJADE [Suspect]
     Active Substance: DEFERASIROX
     Indication: THALASSAEMIA BETA
     Dosage: 1500 MG, DAILY
     Route: 048
     Dates: start: 2008
  2. EXJADE [Suspect]
     Active Substance: DEFERASIROX
     Dosage: 2500 MG, QD
     Route: 048
     Dates: start: 201501

REACTIONS (5)
  - Peripheral swelling [Recovered/Resolved]
  - Oedema peripheral [Recovered/Resolved]
  - Nausea [Recovered/Resolved]
  - Serum ferritin increased [Unknown]
  - Cardiac siderosis [Recovered/Resolved]

NARRATIVE: CASE EVENT DATE: 20140123
